FAERS Safety Report 7343740-7 (Version None)
Quarter: 2011Q1

REPORT INFORMATION
  Report Type: 
  Country: None (occurrence: None)
  Receive Date: 20110310
  Receipt Date: 20101217
  Transmission Date: 20110831
  Serious: No
  Sender: FDA-Public Use
  Company Number: A0900325A

PATIENT
  Age: 63 Year
  Sex: Male

DRUGS (2)
  1. NICORETTE [Suspect]
     Dates: start: 20101213, end: 20101216
  2. GLYBURIDE [Concomitant]

REACTIONS (4)
  - FLUSHING [None]
  - PALPITATIONS [None]
  - HEADACHE [None]
  - MALAISE [None]
